FAERS Safety Report 6220064-2 (Version None)
Quarter: 2009Q2

REPORT INFORMATION
  Report Type: 
  Country: None (occurrence: None)
  Receive Date: 20090609
  Receipt Date: 20090601
  Transmission Date: 20091009
  Serious: Yes (Other)
  Sender: FDA-Public Use
  Company Number: PHEH2009US05539

PATIENT
  Sex: Female

DRUGS (2)
  1. RECLAST [Suspect]
     Indication: OSTEOPOROSIS
  2. EVISTA [Concomitant]

REACTIONS (4)
  - LOOSE TOOTH [None]
  - PERIODONTAL DISEASE [None]
  - PERIODONTAL OPERATION [None]
  - TOOTHACHE [None]
